FAERS Safety Report 6414215-4 (Version None)
Quarter: 2009Q4

REPORT INFORMATION
  Report Type: 
  Country: None (occurrence: None)
  Receive Date: 20091026
  Receipt Date: 20091014
  Transmission Date: 20100525
  Serious: Yes (Other)
  Sender: FDA-Public Use
  Company Number: JP-PFIZER INC-2009270116

PATIENT
  Age: 54 Year

DRUGS (3)
  1. SULPERAZON [Suspect]
     Dosage: 1 G, 2X/DAY
     Route: 042
     Dates: start: 20090912, end: 20090914
  2. ADALAT CC [Concomitant]
     Dosage: UNK
     Route: 048
  3. DILTIAZEM HYDROCHLORIDE [Concomitant]
     Dosage: UNK
     Route: 042

REACTIONS (1)
  - PLATELET COUNT DECREASED [None]
